FAERS Safety Report 8013747-5 (Version None)
Quarter: 2011Q4

REPORT INFORMATION
  Report Type: 
  Country: None (occurrence: None)
  Receive Date: 20111229
  Receipt Date: 20111219
  Transmission Date: 20120403
  Serious: Yes (Hospitalization)
  Sender: FDA-Public Use
  Company Number: DE-ELI_LILLY_AND_COMPANY-DE201112005422

PATIENT
  Sex: Male

DRUGS (6)
  1. DEDROGYL [Concomitant]
     Dosage: 30 DF, QD
  2. TILIDIN [Concomitant]
  3. FORTEO [Suspect]
     Indication: OSTEOPOROSIS
     Dosage: UNK, QD
     Route: 058
     Dates: start: 20110614, end: 20111121
  4. LEVOTHYROXINE SODIUM [Concomitant]
     Dosage: 25 MG, QD
  5. VITAMIN D [Concomitant]
     Dosage: 1 DF, MONTHLY (1/M)
  6. FORTEO [Suspect]
     Dosage: UNK
     Dates: start: 20111122

REACTIONS (1)
  - INGUINAL HERNIA [None]
